FAERS Safety Report 6854001-4 (Version None)
Quarter: 2010Q3

REPORT INFORMATION
  Report Type: 
  Country: None (occurrence: None)
  Receive Date: 20100717
  Receipt Date: 20071222
  Transmission Date: 20110219
  Serious: No
  Sender: FDA-Public Use
  Company Number: US-PFIZER INC-2007108856

PATIENT
  Sex: Female
  Weight: 70.3 kg

DRUGS (3)
  1. CHANTIX [Suspect]
     Indication: SMOKING CESSATION THERAPY
     Dates: start: 20071101
  2. CLINDAMYCIN [Suspect]
     Indication: TOOTH ABSCESS
     Dates: start: 20071221
  3. TYLENOL W/ CODEINE [Suspect]
     Indication: TOOTHACHE
     Dates: start: 20071221, end: 20071201

REACTIONS (6)
  - DIZZINESS [None]
  - MOUTH ULCERATION [None]
  - NAUSEA [None]
  - ORAL PAIN [None]
  - TOOTH ABSCESS [None]
  - TOOTHACHE [None]
